FAERS Safety Report 18566458 (Version 1)
Quarter: 2020Q4

REPORT INFORMATION
  Report Type: Spontaneous
  Country: JP (occurrence: JP)
  Receive Date: 20201201
  Receipt Date: 20201201
  Transmission Date: 20210114
  Serious: Yes (Hospitalization, Other)
  Sender: FDA-Public Use
  Company Number: JP-TEVA-2018-JP-984700

PATIENT
  Age: 53 Year
  Sex: Male

DRUGS (4)
  1. BENDAMUSTIN HYDROCHLORIDE [Suspect]
     Active Substance: BENDAMUSTINE HYDROCHLORIDE
     Dosage: CYCLIC
     Route: 041
     Dates: start: 20180926, end: 20180927
  2. BENDAMUSTIN HYDROCHLORIDE [Suspect]
     Active Substance: BENDAMUSTINE HYDROCHLORIDE
     Dosage: CYCLIC
     Route: 041
     Dates: start: 20181022, end: 20181023
  3. BENDAMUSTIN HYDROCHLORIDE [Suspect]
     Active Substance: BENDAMUSTINE HYDROCHLORIDE
     Dosage: CYCLIC
     Route: 041
     Dates: start: 20180827, end: 20180828
  4. BENDAMUSTIN HYDROCHLORIDE [Suspect]
     Active Substance: BENDAMUSTINE HYDROCHLORIDE
     Indication: CHRONIC LYMPHOCYTIC LEUKAEMIA
     Dosage: CYCLIC (FIRST CYCLE)
     Route: 041
     Dates: start: 20180731, end: 20180801

REACTIONS (7)
  - Febrile neutropenia [Recovered/Resolved]
  - Anaemia [Not Recovered/Not Resolved]
  - Pyrexia [Recovered/Resolved]
  - Platelet count decreased [Not Recovered/Not Resolved]
  - Cytomegalovirus infection [Recovered/Resolved]
  - Immunosuppression [Unknown]
  - Stomatitis [Recovered/Resolved]

NARRATIVE: CASE EVENT DATE: 20181030
